FAERS Safety Report 15982600 (Version 1)
Quarter: 2019Q1

REPORT INFORMATION
  Report Type: Spontaneous
  Country: FR (occurrence: FR)
  Receive Date: 20190219
  Receipt Date: 20190219
  Transmission Date: 20190418
  Serious: Yes (Hospitalization)
  Sender: FDA-Public Use
  Company Number: FR-TEVA-2019-FR-1012828

PATIENT
  Age: 62 Year
  Sex: Female
  Weight: 42 kg

DRUGS (8)
  1. SERTRALINE (CHLORHYDRATE DE) [Suspect]
     Active Substance: SERTRALINE HYDROCHLORIDE
     Indication: ABNORMAL BEHAVIOUR
     Dosage: 50 MILLIGRAM DAILY;
     Route: 048
     Dates: end: 20190116
  2. ESOMEPRAZOLE. [Suspect]
     Active Substance: ESOMEPRAZOLE MAGNESIUM
     Indication: PROPHYLAXIS AGAINST GASTROINTESTINAL ULCER
     Dosage: 20 MILLIGRAM DAILY;
     Route: 048
  3. CHOLECALCIFEROL [Concomitant]
     Active Substance: CHOLECALCIFEROL
     Indication: VITAMIN SUPPLEMENTATION
     Route: 048
  4. TIAPRIDAL 100 MG, COMPRIM? S?CABLE [Suspect]
     Active Substance: TIAPRIDE HYDROCHLORIDE
     Indication: ABNORMAL BEHAVIOUR
     Dosage: 100 MILLIGRAM DAILY;
     Route: 048
  5. MOVICOL [Concomitant]
     Active Substance: POLYETHYLENE GLYCOL 3350\POTASSIUM CHLORIDE\SODIUM BICARBONATE\SODIUM CHLORIDE
     Indication: CONSTIPATION
     Dosage: 2 DOSAGE FORMS DAILY;
     Route: 048
  6. RISPERDAL [Suspect]
     Active Substance: RISPERIDONE
     Indication: ABNORMAL BEHAVIOUR
     Dosage: 2 DOSAGE FORMS DAILY;
     Route: 048
  7. MINIRIN [Suspect]
     Active Substance: DESMOPRESSIN ACETATE
     Indication: DIABETES INSIPIDUS
     Dosage: 60 MICROGRAM DAILY;
     Route: 048
     Dates: end: 20190116
  8. TARDYFERON 80 MG, COMPRIM? ENROB? [Concomitant]
     Active Substance: FERROUS SULFATE
     Indication: ANAEMIA
     Dosage: 160 MILLIGRAM DAILY;
     Route: 048

REACTIONS (5)
  - Hyponatraemia [Recovered/Resolved]
  - Confusional state [Recovered/Resolved]
  - Hyponatraemic seizure [Recovered/Resolved]
  - Condition aggravated [Recovered/Resolved]
  - Hypoosmolar state [Recovered/Resolved]

NARRATIVE: CASE EVENT DATE: 20190115
